FAERS Safety Report 18873242 (Version 2)
Quarter: 2021Q4

REPORT INFORMATION
  Report Type: Spontaneous
  Country: US (occurrence: US)
  Receive Date: 20210210
  Receipt Date: 20211008
  Transmission Date: 20220303
  Serious: Yes (Death, Hospitalization, Other)
  Sender: FDA-Public Use
  Company Number: 2021A026656

PATIENT
  Age: 18809 Day
  Sex: Female
  Weight: 102.5 kg

DRUGS (41)
  1. NEXIUM [Suspect]
     Active Substance: ESOMEPRAZOLE MAGNESIUM
     Indication: Gastrooesophageal reflux disease
     Route: 048
     Dates: start: 2009, end: 2018
  2. NEXIUM [Suspect]
     Active Substance: ESOMEPRAZOLE MAGNESIUM
     Indication: Gastrooesophageal reflux disease
     Dosage: GENERIC
     Route: 065
     Dates: start: 2015, end: 2018
  3. OMEPRAZOLE [Suspect]
     Active Substance: OMEPRAZOLE
     Indication: Gastrooesophageal reflux disease
     Dosage: GENERIC
     Route: 048
     Dates: start: 2017, end: 2018
  4. OMEPRAZOLE [Suspect]
     Active Substance: OMEPRAZOLE
     Indication: Gastrooesophageal reflux disease
     Dosage: GENERIC
     Route: 065
     Dates: start: 2015, end: 2018
  5. PROTONIX [Suspect]
     Active Substance: PANTOPRAZOLE SODIUM
     Route: 065
  6. PROTONIX [Suspect]
     Active Substance: PANTOPRAZOLE SODIUM
     Dosage: GENERIC
     Route: 065
     Dates: start: 2018
  7. PROTONIX [Suspect]
     Active Substance: PANTOPRAZOLE SODIUM
     Indication: Gastrooesophageal reflux disease
     Route: 065
     Dates: start: 2018
  8. CELECOXIB [Concomitant]
     Active Substance: CELECOXIB
     Indication: Musculoskeletal chest pain
     Dates: start: 2015
  9. DICLOFENAC [Concomitant]
     Active Substance: DICLOFENAC
     Indication: Pain
     Dates: start: 2016
  10. AZITHROMYCIN ANHYDROUS [Concomitant]
     Active Substance: AZITHROMYCIN ANHYDROUS
     Indication: Infection
     Dates: start: 2007, end: 2016
  11. NAPROXEN [Concomitant]
     Active Substance: NAPROXEN
     Indication: Pain
     Dates: start: 2007, end: 2018
  12. TRAMADOL [Concomitant]
     Active Substance: TRAMADOL
     Indication: Pain
     Dates: start: 2018
  13. MOXIFLOXACIN [Concomitant]
     Active Substance: MOXIFLOXACIN
     Indication: Eye pain
     Dates: start: 2014
  14. ALCAFTADINE/KETOROLAC [Concomitant]
     Indication: Eye pain
     Dates: start: 2014
  15. ERYTHROMYCIN [Concomitant]
     Active Substance: ERYTHROMYCIN
     Indication: Pain
     Dates: start: 2014
  16. LEVOFLOXACIN [Concomitant]
     Active Substance: LEVOFLOXACIN
     Indication: Infection
     Dates: start: 2015
  17. DOXYCYCLINE [Concomitant]
     Active Substance: DOXYCYCLINE
     Indication: Infection
     Dates: start: 2018
  18. MELOXICAM [Concomitant]
     Active Substance: MELOXICAM
     Indication: Pain
     Dates: start: 2009, end: 2015
  19. ZOFRAN [Concomitant]
     Active Substance: ONDANSETRON HYDROCHLORIDE
  20. SENOKOT [Concomitant]
     Active Substance: SENNOSIDES
  21. DILAUDID [Concomitant]
     Active Substance: HYDROMORPHONE HYDROCHLORIDE
  22. POTASSIUM CHLORIDE [Concomitant]
     Active Substance: POTASSIUM CHLORIDE
  23. MAGNESIUM OXIDE [Concomitant]
     Active Substance: MAGNESIUM OXIDE
  24. SYNTHROID [Concomitant]
     Active Substance: LEVOTHYROXINE SODIUM
  25. METFORMIN [Concomitant]
     Active Substance: METFORMIN HYDROCHLORIDE
  26. LISINOPRIL [Concomitant]
     Active Substance: LISINOPRIL
  27. DOCUSATE [Concomitant]
     Active Substance: DOCUSATE
  28. VARUBI [Concomitant]
     Active Substance: ROLAPITANT
  29. CODEINE [Concomitant]
     Active Substance: CODEINE
  30. CEPHALEXIN [Concomitant]
     Active Substance: CEPHALEXIN
  31. AMOXICILLIN [Concomitant]
     Active Substance: AMOXICILLIN
  32. BENZOCAINE [Concomitant]
     Active Substance: BENZOCAINE
  33. ENOXAPARIN [Concomitant]
     Active Substance: ENOXAPARIN
  34. CIPROFLOXACIN [Concomitant]
     Active Substance: CIPROFLOXACIN
  35. PSEUDOEPHEDRINE. [Concomitant]
     Active Substance: PSEUDOEPHEDRINE HYDROCHLORIDE
  36. LEUCINE/ASPARTIC ACID/OXYMETAZOLINE/LYSINE ACETATE/ORNITHINE/GLUTAMIC [Concomitant]
  37. ALBUMIN HUMAN/ACETYLTRYPTOPHAN [Concomitant]
  38. ELIQUIS [Concomitant]
     Active Substance: APIXABAN
  39. ONDANSETRON [Concomitant]
     Active Substance: ONDANSETRON
  40. CAPECITABINE [Concomitant]
     Active Substance: CAPECITABINE
  41. LOVENOX [Concomitant]
     Active Substance: ENOXAPARIN SODIUM

REACTIONS (5)
  - Gastric cancer stage IV [Fatal]
  - Septic shock [Fatal]
  - Pneumonia [Fatal]
  - Pancytopenia [Fatal]
  - Organ failure [Unknown]

NARRATIVE: CASE EVENT DATE: 20171120
